FAERS Safety Report 25995646 (Version 2)
Quarter: 2025Q4

REPORT INFORMATION
  Report Type: Spontaneous
  Country: US (occurrence: US)
  Receive Date: 20251104
  Receipt Date: 20251106
  Transmission Date: 20260117
  Serious: Yes (Other)
  Sender: SANDOZ
  Company Number: US-SANDOZ-SDZ2025US081512

PATIENT
  Sex: Female

DRUGS (1)
  1. HYDROCORTISONE\NEOMYCIN\POLYMYXIN B SULFATE [Suspect]
     Active Substance: HYDROCORTISONE\NEOMYCIN\POLYMYXIN B SULFATE
     Indication: Product used for unknown indication
     Dosage: STRENGTH:  3.5 MG +10000 IU + 10 MG / 1 ML
     Route: 065

REACTIONS (6)
  - Hypoacusis [Unknown]
  - Excessive cerumen production [Unknown]
  - Pain in jaw [Unknown]
  - Ear discomfort [Unknown]
  - Eye inflammation [Unknown]
  - Drug ineffective [Unknown]
